FAERS Safety Report 4387802-5 (Version None)
Quarter: 2004Q2

REPORT INFORMATION
  Report Type: 
  Country: None (occurrence: None)
  Receive Date: 20040630
  Receipt Date: 20040618
  Transmission Date: 20050107
  Serious: Yes (Hospitalization)
  Sender: FDA-Public Use
  Company Number: JP-GLAXOSMITHKLINE-B0336217A

PATIENT
  Age: 68 Year
  Sex: Female

DRUGS (4)
  1. VALTREX [Suspect]
     Indication: KERATITIS HERPETIC
     Dosage: 1000MG THREE TIMES PER DAY
     Route: 048
     Dates: start: 20040614, end: 20040617
  2. BLOPRESS [Concomitant]
     Dosage: 8MG PER DAY
     Route: 048
     Dates: end: 20040613
  3. BLOPRESS [Concomitant]
     Dosage: 12MG PER DAY
     Route: 048
     Dates: start: 20040614
  4. COMELIAN [Concomitant]
     Dosage: 150MG PER DAY
     Route: 048
     Dates: start: 20040614

REACTIONS (1)
  - OCULOMUCOCUTANEOUS SYNDROME [None]
